FAERS Safety Report 9692235 (Version 1)
Quarter: 2013Q4

REPORT INFORMATION
  Report Type: Spontaneous
  Country: GB (occurrence: GB)
  Receive Date: 20131118
  Receipt Date: 20131118
  Transmission Date: 20140711
  Serious: Yes (Other)
  Sender: FDA-Public Use
  Company Number: GB-PAR PHARMACEUTICAL, INC-2013SCPR007770

PATIENT
  Sex: 0

DRUGS (3)
  1. CABERGOLINE [Suspect]
     Indication: PROLACTINOMA
     Dosage: UNK, UNKNOWN
     Route: 065
  2. BROMOCRIPTINE [Suspect]
     Indication: PROLACTINOMA
     Dosage: UNK, UNKNOWN
     Route: 065
  3. QUINAGOLIDE [Suspect]
     Indication: PROLACTINOMA
     Dosage: UNK, UNKNOWN
     Route: 065

REACTIONS (1)
  - Neutropenia [Recovered/Resolved]
